FAERS Safety Report 18994222 (Version 3)
Quarter: 2021Q2

REPORT INFORMATION
  Report Type: Report from Study
  Country: US (occurrence: US)
  Receive Date: 20210310
  Receipt Date: 20210409
  Transmission Date: 20210717
  Serious: Yes (Hospitalization)
  Sender: FDA-Public Use
  Company Number: US-PFIZER INC-2021229795

PATIENT
  Age: 69 Year
  Sex: Male
  Weight: 63.5 kg

DRUGS (2)
  1. BINIMETINIB [Suspect]
     Active Substance: BINIMETINIB
     Indication: NON-SMALL CELL LUNG CANCER
     Dosage: 30 MG, CYCLIC, TWICE DAILY, D 1?28/DAYS 28 OF 28
     Route: 048
     Dates: start: 20210223, end: 20210302
  2. PALBOCICLIB [Suspect]
     Active Substance: PALBOCICLIB
     Indication: NON-SMALL CELL LUNG CANCER
     Dosage: 125 MG, CYCLIC, ONCE DAILY, D 1?21/DAYS 21 OUT OF 28
     Route: 048
     Dates: start: 20210223, end: 20210302

REACTIONS (2)
  - Blood creatine phosphokinase increased [Not Recovered/Not Resolved]
  - Troponin T increased [Not Recovered/Not Resolved]

NARRATIVE: CASE EVENT DATE: 20210302
